FAERS Safety Report 5149409-1 (Version None)
Quarter: 2006Q4

REPORT INFORMATION
  Report Type: 
  Country: None (occurrence: None)
  Receive Date: 20061113
  Receipt Date: 20060103
  Transmission Date: 20070319
  Serious: No
  Sender: FDA-Public Use
  Company Number: 430695

PATIENT
  Age: 56 Year
  Sex: Female

DRUGS (5)
  1. COREG [Suspect]
     Dosage: 12.5MG TWICE PER DAY
     Route: 048
     Dates: start: 20051224
  2. LIPITOR [Concomitant]
  3. LISINOPRIL [Concomitant]
  4. LEVOXYL [Concomitant]
  5. ASPIRIN [Concomitant]

REACTIONS (2)
  - CHEST PAIN [None]
  - MUSCULAR WEAKNESS [None]
